FAERS Safety Report 7124236-4 (Version None)
Quarter: 2010Q4

REPORT INFORMATION
  Report Type: 
  Country: None (occurrence: None)
  Receive Date: 20101126
  Receipt Date: 20101122
  Transmission Date: 20110411
  Serious: Yes (Death, Hospitalization)
  Sender: FDA-Public Use
  Company Number: US-PFIZER INC-2010146666

PATIENT
  Sex: Female

DRUGS (13)
  1. ADRIAMYCIN PFS [Suspect]
     Indication: ENDOMETRIAL CANCER
     Dosage: 120 MG, UNK
     Route: 042
     Dates: start: 20101020
  2. IRON [Concomitant]
  3. ATENOLOL [Concomitant]
     Dosage: UNK
  4. HYDROCHLOROTHIAZIDE [Concomitant]
  5. MULTI-VITAMINS [Concomitant]
  6. PRAVACHOL [Concomitant]
  7. MEGACE [Concomitant]
  8. PEPCID AC [Concomitant]
  9. HYDROXYZINE [Concomitant]
  10. PROMETHAZINE HYDROCHLORIDE [Concomitant]
  11. MAGIC MOUTHWASH [Concomitant]
  12. ZOFRAN [Concomitant]
  13. COMPAZINE [Concomitant]

REACTIONS (3)
  - DEATH [None]
  - DEHYDRATION [None]
  - URINARY TRACT INFECTION [None]
